FAERS Safety Report 22238666 (Version 2)
Quarter: 2023Q2

REPORT INFORMATION
  Report Type: Spontaneous
  Country: JP (occurrence: JP)
  Receive Date: 20230421
  Receipt Date: 20230421
  Transmission Date: 20230722
  Serious: Yes (Death, Hospitalization, Other)
  Sender: FDA-Public Use
  Company Number: JP-MSD-M2022-40887

PATIENT
  Age: 8 Decade
  Sex: Male

DRUGS (5)
  1. KEYTRUDA [Suspect]
     Active Substance: PEMBROLIZUMAB
     Indication: Tongue cancer recurrent
     Dosage: 200 MILLIGRAM, Q3W
     Route: 041
     Dates: start: 20220620, end: 20220620
  2. FLUOROURACIL [Suspect]
     Active Substance: FLUOROURACIL
     Indication: Tongue cancer recurrent
     Dosage: UNK
     Route: 041
     Dates: start: 20220620, end: 2022
  3. CISPLATIN [Suspect]
     Active Substance: CISPLATIN
     Indication: Tongue cancer recurrent
     Dosage: UNK
     Route: 041
     Dates: start: 20220620, end: 2022
  4. PACLITAXEL [Suspect]
     Active Substance: PACLITAXEL
     Indication: Tongue cancer recurrent
     Dosage: UNK
     Route: 041
     Dates: start: 20220719, end: 20220802
  5. CETUXIMAB [Suspect]
     Active Substance: CETUXIMAB
     Indication: Tongue cancer recurrent
     Dosage: UNK
     Route: 041
     Dates: start: 20220719, end: 20220802

REACTIONS (1)
  - Hepatitis fulminant [Fatal]

NARRATIVE: CASE EVENT DATE: 20220824
